FAERS Safety Report 12606707 (Version 5)
Quarter: 2018Q4

REPORT INFORMATION
  Report Type: Spontaneous
  Country: JP (occurrence: JP)
  Receive Date: 20160729
  Receipt Date: 20181206
  Transmission Date: 20190204
  Serious: Yes (Other)
  Sender: FDA-Public Use
  Company Number: JP-ACTELION-A-CH2016-134291

PATIENT
  Age: 86 Year
  Sex: Female

DRUGS (10)
  1. TRACLEER [Suspect]
     Active Substance: BOSENTAN
     Dosage: 62.5 MG, QD
     Route: 048
     Dates: start: 20161128, end: 20170224
  2. LOXONIN [Concomitant]
     Active Substance: LOXOPROFEN SODIUM
  3. DIART [Concomitant]
     Active Substance: AZOSEMIDE
  4. TRACLEER [Suspect]
     Active Substance: BOSENTAN
     Indication: SCLERODERMA ASSOCIATED DIGITAL ULCER
     Dosage: 62.5 MG, BID
     Route: 048
     Dates: start: 20151027, end: 20160218
  5. MICAMLO [Concomitant]
     Active Substance: AMLODIPINE BESYLATE\TELMISARTAN
  6. MYONAL [Concomitant]
     Active Substance: EPERISONE HYDROCHLORIDE
  7. TAKEPRON [Concomitant]
     Active Substance: LANSOPRAZOLE
  8. FRESTOL [Concomitant]
  9. JUVELA N [Concomitant]
     Active Substance: TOCOPHERYL NICOTINATE, D-.ALPHA.
  10. AMLODIPINE [Concomitant]
     Active Substance: AMLODIPINE BESYLATE

REACTIONS (8)
  - Oxygen saturation decreased [Recovering/Resolving]
  - Dyspnoea [Recovering/Resolving]
  - Pleural effusion [Recovering/Resolving]
  - Oedema peripheral [Recovering/Resolving]
  - Cardiac failure congestive [Recovering/Resolving]
  - Cardiothoracic ratio increased [Recovering/Resolving]
  - Gangrene [Recovered/Resolved]
  - Cardiomegaly [Recovering/Resolving]

NARRATIVE: CASE EVENT DATE: 20160210
